FAERS Safety Report 25974442 (Version 1)
Quarter: 2025Q4

REPORT INFORMATION
  Report Type: Spontaneous
  Country: US (occurrence: None)
  Receive Date: 20251028
  Receipt Date: 20251028
  Transmission Date: 20260118
  Serious: Yes (Disabling, Other)
  Sender: FDA-CTU
  Company Number: None

PATIENT
  Sex: Female

DRUGS (1)
  1. EFFEXOR XR [Suspect]
     Active Substance: VENLAFAXINE HYDROCHLORIDE
     Dates: start: 20060101, end: 20180401

REACTIONS (15)
  - Influenza like illness [None]
  - Electric shock sensation [None]
  - Tinnitus [None]
  - Hyperacusis [None]
  - Tachyphrenia [None]
  - Withdrawal syndrome [None]
  - Anger [None]
  - Suicidal ideation [None]
  - Panic attack [None]
  - Impaired work ability [None]
  - Sexual dysfunction [None]
  - Libido decreased [None]
  - Emotional disorder [None]
  - Hypoaesthesia [None]
  - Communication disorder [None]
